FAERS Safety Report 7373450-1 (Version None)
Quarter: 2011Q1

REPORT INFORMATION
  Report Type: 
  Country: None (occurrence: None)
  Receive Date: 20110325
  Receipt Date: 20110317
  Transmission Date: 20110831
  Serious: Yes (Hospitalization)
  Sender: FDA-Public Use
  Company Number: US-BIOGENIDEC-2011BI008633

PATIENT
  Age: 47 Year
  Sex: Female
  Weight: 68 kg

DRUGS (4)
  1. AVONEX [Suspect]
     Indication: MULTIPLE SCLEROSIS
     Route: 030
     Dates: start: 20100901
  2. CELEXA [Concomitant]
     Indication: DEPRESSION
  3. AVONEX [Suspect]
     Route: 030
     Dates: start: 20070601, end: 20080801
  4. AVONEX [Suspect]
     Route: 030
     Dates: start: 19970101, end: 20000101

REACTIONS (5)
  - BLOOD PRESSURE FLUCTUATION [None]
  - COORDINATION ABNORMAL [None]
  - MULTIPLE SCLEROSIS RELAPSE [None]
  - LOSS OF CONSCIOUSNESS [None]
  - FALL [None]
